FAERS Safety Report 18483788 (Version 5)
Quarter: 2021Q1

REPORT INFORMATION
  Report Type: Report from Study
  Country: None (occurrence: US)
  Receive Date: 20201109
  Receipt Date: 20210330
  Transmission Date: 20210419
  Serious: Yes (Hospitalization, Other)
  Sender: FDA-Public Use
  Company Number: US-ABBVIE-20K-163-3639867-00

PATIENT
  Age: 57 Year
  Sex: Female
  Weight: 99.88 kg

DRUGS (3)
  1. RINVOQ [Suspect]
     Active Substance: UPADACITINIB
     Indication: RHEUMATOID ARTHRITIS
     Route: 048
     Dates: start: 201910, end: 20201108
  2. CLONAZEPAM. [Concomitant]
     Active Substance: CLONAZEPAM
     Indication: ANXIETY
  3. RINVOQ [Suspect]
     Active Substance: UPADACITINIB
     Route: 048
     Dates: start: 202102

REACTIONS (13)
  - Pneumonia [Not Recovered/Not Resolved]
  - Rotator cuff syndrome [Unknown]
  - Lung disorder [Unknown]
  - Osteochondrosis [Recovering/Resolving]
  - Rheumatoid arthritis [Unknown]
  - Sputum discoloured [Not Recovered/Not Resolved]
  - Peripheral swelling [Recovering/Resolving]
  - Feeling abnormal [Unknown]
  - COVID-19 [Unknown]
  - Neuropathy peripheral [Not Recovered/Not Resolved]
  - Limb injury [Unknown]
  - Oxygen saturation decreased [Not Recovered/Not Resolved]
  - Pain [Unknown]

NARRATIVE: CASE EVENT DATE: 2019
